FAERS Safety Report 6671556-3 (Version None)
Quarter: 2010Q2

REPORT INFORMATION
  Report Type: 
  Country: None (occurrence: None)
  Receive Date: 20100407
  Receipt Date: 20100331
  Transmission Date: 20101027
  Serious: Yes (Death, Hospitalization)
  Sender: FDA-Public Use
  Company Number: FR-ELI_LILLY_AND_COMPANY-FR201004000192

PATIENT
  Age: 60 Year
  Sex: Male

DRUGS (5)
  1. ALIMTA [Suspect]
     Indication: LUNG NEOPLASM MALIGNANT
     Dosage: UNK, UNKNOWN
     Route: 042
  2. CARBOPLATIN [Concomitant]
     Indication: LUNG NEOPLASM MALIGNANT
     Dosage: UNK, UNKNOWN
     Route: 042
  3. FOLIC ACID [Concomitant]
     Indication: SUPPLEMENTATION THERAPY
     Dosage: UNK, UNKNOWN
     Route: 065
  4. VITAMIN B-12 [Concomitant]
     Indication: SUPPLEMENTATION THERAPY
     Dosage: UNK, UNKNOWN
     Route: 065
  5. CORTICOSTEROID NOS [Concomitant]
     Indication: PROPHYLAXIS
     Dosage: UNK, UNKNOWN
     Route: 065

REACTIONS (5)
  - DIARRHOEA [None]
  - ERYTHEMA [None]
  - ESCHERICHIA SEPSIS [None]
  - NEUTROPENIA [None]
  - VASCULITIS [None]
